FAERS Safety Report 16286875 (Version 1)
Quarter: 2019Q2

REPORT INFORMATION
  Report Type: Report from Study
  Country: IT (occurrence: IT)
  Receive Date: 20190508
  Receipt Date: 20190508
  Transmission Date: 20190711
  Serious: Yes (Hospitalization)
  Sender: FDA-Public Use
  Company Number: IT-EXELIXIS-CABO-19020827

PATIENT
  Age: 71 Year
  Sex: Male
  Weight: 62 kg

DRUGS (4)
  1. TRIATEC [Concomitant]
     Indication: HYPERTENSION
  2. ACETYLSALICYLIC ACID [Concomitant]
     Active Substance: ASPIRIN
     Indication: PROPHYLAXIS
  3. YANOVIA [Concomitant]
     Indication: TYPE 2 DIABETES MELLITUS
  4. CABOMETYX [Suspect]
     Active Substance: CABOZANTINIB S-MALATE
     Indication: HEPATOCELLULAR CARCINOMA
     Dosage: 60 MG, QD
     Route: 048
     Dates: start: 20190402, end: 20190430

REACTIONS (3)
  - Subdural haemorrhage [Recovering/Resolving]
  - Epistaxis [Recovering/Resolving]
  - Head injury [Recovering/Resolving]

NARRATIVE: CASE EVENT DATE: 20190429
